FAERS Safety Report 9959724 (Version 1)
Quarter: 2014Q1

REPORT INFORMATION
  Report Type: Report from Study
  Country: US (occurrence: US)
  Receive Date: 20140305
  Receipt Date: 20140305
  Transmission Date: 20141002
  Serious: No
  Sender: FDA-Public Use
  Company Number: US-ABBVIE-13P-163-1105955-00

PATIENT
  Age: 52 Year
  Sex: Female

DRUGS (7)
  1. HUMIRA [Suspect]
     Indication: PSORIATIC ARTHROPATHY
     Dates: start: 20130530
  2. CARBAMAZEPINE [Concomitant]
     Indication: MIGRAINE
     Route: 048
  3. CARBAMAZEPINE [Concomitant]
     Indication: HEAD INJURY
  4. NORTRIPTYLINE [Concomitant]
     Indication: NEURALGIA
     Dosage: 1 IN AFTERNOON AND 2 AT BEDTIME
  5. ACYCLOVIR [Concomitant]
     Indication: HERPES ZOSTER
     Route: 048
  6. ATENOLOL [Concomitant]
     Indication: HYPERTENSION
     Route: 048
  7. HYDROCHLOROTHIAZIDE [Concomitant]
     Indication: HYPERTENSION
     Route: 048

REACTIONS (4)
  - Injection site pain [Not Recovered/Not Resolved]
  - Injection site erythema [Not Recovered/Not Resolved]
  - Injection site pruritus [Not Recovered/Not Resolved]
  - Injection site swelling [Not Recovered/Not Resolved]
